FAERS Safety Report 4585856-4 (Version None)
Quarter: 2005Q1

REPORT INFORMATION
  Report Type: 
  Country: None (occurrence: None)
  Receive Date: 20050217
  Receipt Date: 20050209
  Transmission Date: 20050727
  Serious: Yes (Other)
  Sender: FDA-Public Use
  Company Number: US-GLAXOSMITHKLINE-A0544795A

PATIENT
  Age: 21 Year
  Sex: Female

DRUGS (2)
  1. PAXIL CR [Suspect]
     Indication: DEPRESSION
     Dosage: 12.5MG PER DAY
     Route: 048
  2. NO CONCURRENT MEDICATION [Concomitant]

REACTIONS (2)
  - PARAESTHESIA [None]
  - SUICIDAL IDEATION [None]
